FAERS Safety Report 4371206-5 (Version None)
Quarter: 2004Q2

REPORT INFORMATION
  Report Type: 
  Country: None (occurrence: None)
  Receive Date: 20040604
  Receipt Date: 20040527
  Transmission Date: 20050107
  Serious: Yes (Hospitalization, Other)
  Sender: FDA-Public Use
  Company Number: GB-GLAXOSMITHKLINE-B0334151A

PATIENT
  Age: 53 Year
  Sex: Male
  Weight: 69.8 kg

DRUGS (1)
  1. ZYBAN [Suspect]
     Dosage: 150MG TWICE PER DAY
     Route: 048
     Dates: start: 20040311, end: 20040519

REACTIONS (2)
  - MUSCULOSKELETAL STIFFNESS [None]
  - NEURALGIA [None]
